FAERS Safety Report 15255538 (Version 1)
Quarter: 2018Q3

REPORT INFORMATION
  Report Type: Spontaneous
  Country: US (occurrence: US)
  Receive Date: 20180717
  Receipt Date: 20180717
  Transmission Date: 20181010
  Serious: Yes (Hospitalization)
  Sender: FDA-Public Use
  Company Number: None

PATIENT
  Age: 34 Year
  Sex: Female

DRUGS (1)
  1. OPSUMIT [Suspect]
     Active Substance: MACITENTAN
     Indication: COR PULMONALE
     Route: 048
     Dates: start: 201704

REACTIONS (3)
  - Abdominal pain [None]
  - Hydrocholecystis [None]
  - Inflammation [None]

NARRATIVE: CASE EVENT DATE: 20180416
